FAERS Safety Report 10232857 (Version 1)
Quarter: 2014Q2

REPORT INFORMATION
  Report Type: Spontaneous
  Country: US (occurrence: None)
  Receive Date: 20140506
  Receipt Date: 20140506
  Transmission Date: 20141212
  Serious: Yes (Hospitalization)
  Sender: FDA-Public Use
  Company Number: 1254831

PATIENT
  Age: 64 Year
  Sex: Female

DRUGS (1)
  1. AVASTIN (BEVACIZUMAB) (INJECTION) [Suspect]
     Indication: MACULAR DEGENERATION
     Route: 031

REACTIONS (1)
  - Acute coronary syndrome [None]
